FAERS Safety Report 7951182-6 (Version None)
Quarter: 2011Q4

REPORT INFORMATION
  Report Type: 
  Country: None (occurrence: None)
  Receive Date: 20111201
  Receipt Date: 20111123
  Transmission Date: 20120403
  Serious: Yes (Other)
  Sender: FDA-Public Use
  Company Number: PHFR2010GB04244

PATIENT
  Sex: Female

DRUGS (1)
  1. CLOZARIL [Suspect]
     Indication: SCHIZOPHRENIA
     Dosage: UNK
     Route: 048
     Dates: start: 19990713

REACTIONS (4)
  - WHITE BLOOD CELL COUNT INCREASED [None]
  - BREAST CANCER [None]
  - LYMPHOMA [None]
  - NEUTROPHIL COUNT DECREASED [None]
